FAERS Safety Report 8895426 (Version 1)
Quarter: 2012Q4

REPORT INFORMATION
  Report Type: 
  Country: ES (occurrence: ES)
  Receive Date: 20121107
  Receipt Date: 20121107
  Transmission Date: 20130627
  Serious: Yes (Other)
  Sender: FDA-Public Use
  Company Number: PHHY2012ES101835

PATIENT
  Age: 52 Year
  Sex: Female

DRUGS (2)
  1. RISPERIDONE [Suspect]
     Indication: MAJOR DEPRESSION
     Dosage: 3 mg, UNK
  2. FLUOXETINE [Concomitant]

REACTIONS (5)
  - Akathisia [Recovered/Resolved]
  - Restlessness [Recovered/Resolved]
  - Restless legs syndrome [Recovered/Resolved]
  - Depression [Recovered/Resolved]
  - Suicidal ideation [Recovered/Resolved]
